FAERS Safety Report 8064386-1 (Version None)
Quarter: 2012Q1

REPORT INFORMATION
  Report Type: 
  Country: None (occurrence: None)
  Receive Date: 20120123
  Receipt Date: 20120120
  Transmission Date: 20120608
  Serious: Yes (Hospitalization, Other)
  Sender: FDA-Public Use
  Company Number: US-AMGEN-USASP2011027497

PATIENT
  Sex: Male

DRUGS (2)
  1. MULTI-VITAMIN WITHOUT IRON [Concomitant]
     Dates: start: 20120101
  2. NPLATE [Suspect]
     Indication: IDIOPATHIC THROMBOCYTOPENIC PURPURA
     Dosage: UNK UNK, QWK
     Dates: start: 20110401

REACTIONS (3)
  - PLATELET COUNT DECREASED [None]
  - PLATELET COUNT INCREASED [None]
  - HOSPITALISATION [None]
